FAERS Safety Report 8433926-2 (Version None)
Quarter: 2012Q2

REPORT INFORMATION
  Report Type: 
  Country: None (occurrence: None)
  Receive Date: 20120613
  Receipt Date: 20120608
  Transmission Date: 20120825
  Serious: Yes (Life-Threatening, Hospitalization)
  Sender: FDA-Public Use
  Company Number: JP-PFIZER INC-2012135881

PATIENT
  Age: 78 Year
  Sex: Male

DRUGS (2)
  1. ENALAPRIL MALEATE [Suspect]
     Dosage: 5 MG, 1X/DAY
     Route: 048
     Dates: end: 20120503
  2. ESTRACYT [Suspect]
     Dosage: 626.8 MG, 1X/DAY
     Route: 048
     Dates: start: 20120420, end: 20120503

REACTIONS (2)
  - TONGUE OEDEMA [None]
  - PHARYNGEAL OEDEMA [None]
